FAERS Safety Report 4841777-0 (Version None)
Quarter: 2005Q4

REPORT INFORMATION
  Report Type: 
  Country: None (occurrence: None)
  Receive Date: 20051130
  Receipt Date: 20051123
  Transmission Date: 20060501
  Serious: Yes (Hospitalization)
  Sender: FDA-Public Use
  Company Number: AU-ROCHE-425971

PATIENT
  Age: 43 Year
  Sex: Male

DRUGS (8)
  1. CEFTRIAXONE [Suspect]
     Indication: DRUG USE FOR UNKNOWN INDICATION
     Route: 042
     Dates: start: 20030821, end: 20030823
  2. PENICILLIN [Concomitant]
  3. ZOTON [Concomitant]
  4. DIAZEPAM [Concomitant]
  5. NUROFEN [Concomitant]
  6. NITRODERM [Concomitant]
  7. ANGININE [Concomitant]
  8. HEPARIN [Concomitant]

REACTIONS (3)
  - CHEST DISCOMFORT [None]
  - MYALGIA [None]
  - PARAESTHESIA [None]
